FAERS Safety Report 25052454 (Version 1)
Quarter: 2025Q1

REPORT INFORMATION
  Report Type: Spontaneous
  Country: US (occurrence: US)
  Receive Date: 20250307
  Receipt Date: 20250307
  Transmission Date: 20250408
  Serious: No
  Sender: GALDERMA
  Company Number: US-GALDERMA-US2024018516

PATIENT
  Sex: Female

DRUGS (1)
  1. DIFFERIN GEL [Suspect]
     Active Substance: ADAPALENE
     Indication: Acne
     Dosage: 1 DOSAGE FORM, BIW
     Route: 061

REACTIONS (4)
  - Acne [Not Recovered/Not Resolved]
  - Pain of skin [Unknown]
  - Inappropriate schedule of product administration [Recovered/Resolved]
  - Underdose [Recovered/Resolved]
